FAERS Safety Report 8942181 (Version 1)
Quarter: 2012Q4

REPORT INFORMATION
  Report Type: 
  Country: BE (occurrence: BE)
  Receive Date: 20121202
  Receipt Date: 20121202
  Transmission Date: 20130627
  Serious: Yes (Death)
  Sender: FDA-Public Use
  Company Number: BE-BRISTOL-MYERS SQUIBB COMPANY-17144502

PATIENT

DRUGS (1)
  1. YERVOY [Suspect]

REACTIONS (1)
  - Pneumonitis [Fatal]
